FAERS Safety Report 11138522 (Version 1)
Quarter: 2015Q2

REPORT INFORMATION
  Report Type: Report from Study
  Country: FR (occurrence: FR)
  Receive Date: 20150527
  Receipt Date: 20150527
  Transmission Date: 20150821
  Serious: Yes (Hospitalization)
  Sender: FDA-Public Use
  Company Number: FR-ROCHE-1164256

PATIENT
  Age: 60 Year
  Sex: Female

DRUGS (4)
  1. RITUXIMAB [Suspect]
     Active Substance: RITUXIMAB
     Indication: RHEUMATOID ARTHRITIS
     Dosage: DAY 1
     Route: 065
     Dates: start: 20080526
  2. RITUXIMAB [Suspect]
     Active Substance: RITUXIMAB
     Dosage: DAY 15
     Route: 065
     Dates: start: 20080609
  3. CORTANCYL [Concomitant]
     Active Substance: PREDNISONE
     Route: 065
  4. METHOTREXATE [Concomitant]
     Active Substance: METHOTREXATE
     Route: 065

REACTIONS (9)
  - Diverticulitis [Recovered/Resolved]
  - Synovitis [Recovered/Resolved]
  - Pyrexia [Recovered/Resolved]
  - Tibia fracture [Recovered/Resolved]
  - Ankle fracture [Recovered/Resolved with Sequelae]
  - Genitourinary tract infection [Recovered/Resolved]
  - Abscess [Recovered/Resolved]
  - Hepatocellular injury [Recovered/Resolved]
  - Arthritis [Recovered/Resolved]

NARRATIVE: CASE EVENT DATE: 200810
